FAERS Safety Report 6826189-2 (Version None)
Quarter: 2010Q3

REPORT INFORMATION
  Report Type: 
  Country: None (occurrence: None)
  Receive Date: 20100709
  Receipt Date: 20100629
  Transmission Date: 20110219
  Serious: Yes (Other)
  Sender: FDA-Public Use
  Company Number: SE-JNJFOC-20100600324

PATIENT
  Age: 54 Year
  Sex: Female

DRUGS (4)
  1. REMICADE [Suspect]
     Indication: RHEUMATOID ARTHRITIS
     Route: 042
  2. SALAZOPYRIN [Concomitant]
  3. PREDNISOLONE [Concomitant]
  4. METHOTREXATE [Concomitant]

REACTIONS (1)
  - BASAL CELL CARCINOMA [None]
